FAERS Safety Report 18768057 (Version 3)
Quarter: 2021Q1

REPORT INFORMATION
  Report Type: Spontaneous
  Country: ES (occurrence: ES)
  Receive Date: 20210121
  Receipt Date: 20210308
  Transmission Date: 20210419
  Serious: Yes (Death, Hospitalization, Other)
  Sender: FDA-Public Use
  Company Number: ES-ASTELLAS-2021US002157

PATIENT
  Age: 49 Year
  Sex: Female

DRUGS (70)
  1. HYDREA [Concomitant]
     Active Substance: HYDROXYUREA
     Dosage: UNK UNK, UNKNOWN FREQ.
     Route: 065
     Dates: end: 20201114
  2. ETOPOSIDE. [Concomitant]
     Active Substance: ETOPOSIDE
     Dosage: 1 DF, ADMINISTRATE 1HR BEFORE DINNER, ADMINISTRATE WITHOUT FOOD, THAT ITS, 1 HR OR 2 AFTER
     Route: 048
     Dates: start: 20201104, end: 20201106
  3. POTASSIUM [Concomitant]
     Active Substance: POTASSIUM
     Dosage: 500 ML, EVERY 8 HOURS (20 MEQ)
     Route: 042
     Dates: start: 20201109, end: 20201119
  4. PIPERACILLIN AND TAZOBACTAM [Concomitant]
     Active Substance: PIPERACILLIN SODIUM\TAZOBACTAM SODIUM
     Dosage: 1 DF (AMP), EVERY 8 HOURS
     Route: 042
     Dates: start: 20201031, end: 20201111
  5. AMCHAFIBRIN [Concomitant]
     Active Substance: TRANEXAMIC ACID
     Dosage: 2 DF (500 MG/ 5ML AMP), EVERY 8 HOURS (AMPOULE IN EACH SERUM OF 500CC)
     Route: 042
     Dates: start: 20201109, end: 20201119
  6. BROMAZEPAM [Concomitant]
     Active Substance: BROMAZEPAM
     Indication: NERVOUSNESS
  7. PHOSPHATE MONOPOTASSIQUE AGUETTANT [Concomitant]
     Dosage: 1 DF, ONCE DAILY (EACH 48 H AFTERNOON)
     Route: 042
     Dates: end: 20201101
  8. PHOSPHATE MONOPOTASSIQUE AGUETTANT [Concomitant]
     Dosage: 4 DF, UNKNOWN FREQ. (URGENT MEDICATION, IN THE PHYSIOLOGIC)
     Route: 042
     Dates: start: 20201124, end: 20201125
  9. LORMETAZEPAM [Concomitant]
     Active Substance: LORMETAZEPAM
     Dosage: 1 DF (COM), UNKNOWN FREQ. (BEFORE SLEEPING)
     Route: 065
     Dates: start: 20201104, end: 20201119
  10. METHYLPREDNISOLONE. [Concomitant]
     Active Substance: METHYLPREDNISOLONE
     Indication: NAUSEA
     Dosage: 1 DF, ONLY DOSE
     Route: 042
     Dates: start: 20201031, end: 20201031
  11. METHYLPREDNISOLONE. [Concomitant]
     Active Substance: METHYLPREDNISOLONE
     Indication: VOMITING
     Dosage: 1 DF (AMP), ONCE DAILY
     Route: 042
     Dates: start: 20201107, end: 20201109
  12. ETOPOSIDE. [Concomitant]
     Active Substance: ETOPOSIDE
     Dosage: 1 DF, URGENT MEDICATION, ADMINISTRATE AT 20H (ADMINISTRATE WITHOUT FOOD, THAT ITS, 1 HR OR 2 AFTER)
     Route: 048
     Dates: start: 20201031, end: 20201101
  13. POTASSIUM [Concomitant]
     Active Substance: POTASSIUM
     Dosage: 500 ML, EVERY 8 HOURS (20 MEQ)
     Route: 042
     Dates: start: 20201124, end: 20201124
  14. ALOPURINOL [Concomitant]
     Active Substance: ALLOPURINOL
     Indication: PRODUCT USED FOR UNKNOWN INDICATION
     Dosage: 1, UNITS UNKNOWN (COM), AT BREAKFAST
     Route: 048
     Dates: start: 20201031, end: 20201031
  15. CAPTOPRIL. [Concomitant]
     Active Substance: CAPTOPRIL
     Indication: BLOOD PRESSURE MEASUREMENT
     Dosage: 1 DF (COM, IF BP} 140/80)
     Route: 048
     Dates: start: 20201031, end: 20201130
  16. METHYLPREDNISOLONE. [Concomitant]
     Active Substance: METHYLPREDNISOLONE
     Route: 042
     Dates: start: 20201120, end: 20201126
  17. METHYLPREDNISOLONE. [Concomitant]
     Active Substance: METHYLPREDNISOLONE
     Dosage: 1 DF (IVP30), EVERY 8 HOURS (IF NAUSEA OR VOMITS)
     Route: 042
     Dates: start: 20201031, end: 20201130
  18. MORPHINE [Concomitant]
     Active Substance: MORPHINE
     Dosage: 1 DF (10MG/1ML AMP), UNKNOWN FREQ. IF DYSNEA, UNDER DEMAND
     Route: 065
     Dates: start: 20201129, end: 20201129
  19. PARACETAMOL [Concomitant]
     Active Substance: ACETAMINOPHEN
     Indication: PYREXIA
     Dosage: 1 DF (1G/100ML VIAL), EVERY 8 HOURS IF FEVER OR PAIN
     Route: 042
     Dates: start: 20201031, end: 20201130
  20. POTASSIUM CHLORIDE. [Concomitant]
     Active Substance: POTASSIUM CHLORIDE
     Dosage: 40 MEQ, UNKNOWN FREQ., URGENT MEDICATION, ADMINISTRATE AT 14H, IN THE PHYSIOLOGIC
     Route: 042
     Dates: start: 20201125, end: 20201126
  21. ETOPOSIDE. [Concomitant]
     Active Substance: ETOPOSIDE
     Dosage: UNK, UNKNOWN FREQ.
     Route: 065
     Dates: end: 20201114
  22. POTASSIUM [Concomitant]
     Active Substance: POTASSIUM
     Indication: PRODUCT USED FOR UNKNOWN INDICATION
     Dosage: 500 ML, ONLY DOSE (10 MEQ)
     Route: 042
     Dates: start: 20201031, end: 20201031
  23. AMCHAFIBRIN [Concomitant]
     Active Substance: TRANEXAMIC ACID
     Dosage: 2 DF (500 MG/ 5ML AMP), EVERY 8 HOURS
     Dates: start: 20201124, end: 20201126
  24. BICARBONATE SODIUM [Concomitant]
     Active Substance: SODIUM BICARBONATE
     Dosage: 2 DF (COM), AFTER MEALS
     Route: 048
     Dates: start: 20201031, end: 20201124
  25. PHOSPHATE MONOPOTASSIQUE AGUETTANT [Concomitant]
     Dosage: 1 DF, UNKNOWN FREQ. (EACH 48 H AFTERNOON)
     Route: 042
     Dates: start: 20201102, end: 20201105
  26. METHYLPREDNISOLONE. [Concomitant]
     Active Substance: METHYLPREDNISOLONE
     Dosage: 1 DF, ONCE DAILY (URGENT MEDICATION, ADMINISTRATE AT 20H)
     Route: 042
     Dates: start: 20201112, end: 20201113
  27. POTASSIUM CHLORIDE. [Concomitant]
     Active Substance: POTASSIUM CHLORIDE
     Dosage: 20 MEQ, EVERY 8 HOURS (ADMINISTRATE AT GREATESTIN EACH, GLUCOSE SERUM)
     Route: 042
     Dates: start: 20201126, end: 20201129
  28. HYDREA [Concomitant]
     Active Substance: HYDROXYUREA
     Route: 048
     Dates: start: 20201031, end: 20201104
  29. POTASSIUM [Concomitant]
     Active Substance: POTASSIUM
     Dosage: 500 ML, EVERY 12 HOURS (20 MEQ)
     Route: 042
     Dates: start: 20201119, end: 20201124
  30. AMCHAFIBRIN [Concomitant]
     Active Substance: TRANEXAMIC ACID
     Dosage: 1 DF (500 MG/ 5ML AMP), EVERY 6 HOURS (ASSOCIATED WITH EACH SERUM)
     Route: 042
     Dates: start: 20201031, end: 20201101
  31. AMCHAFIBRIN [Concomitant]
     Active Substance: TRANEXAMIC ACID
     Dosage: 1 DF (500 MG/ 5ML AMP), EVERY 6 HOURS (AMPOULE IN EACH SERUM OF 500CC)
     Route: 042
     Dates: start: 20201101, end: 20201109
  32. AMCHAFIBRIN [Concomitant]
     Active Substance: TRANEXAMIC ACID
     Dosage: 3 DF (500 MG/ 5ML AMP), EVERY 12 HOURS (AMPOULE IN EACH SERUM OF 500CC)
     Route: 042
     Dates: start: 20201119, end: 20201124
  33. AMCHAFIBRIN [Concomitant]
     Active Substance: TRANEXAMIC ACID
     Dosage: 3 DF (500 MG/ 5ML AMP), EVERY 12 HOURS (AMPOULE IN EACH SERUM OF 500CC)
     Route: 042
     Dates: start: 20201124, end: 20201124
  34. METHYLPREDNISOLONE. [Concomitant]
     Active Substance: METHYLPREDNISOLONE
     Dosage: 5 DF (AMP), ONCE DAILY
     Route: 042
     Dates: start: 20201105, end: 20201107
  35. METHYLPREDNISOLONE. [Concomitant]
     Active Substance: METHYLPREDNISOLONE
     Route: 042
     Dates: start: 20201119, end: 20201120
  36. MORPHINE [Concomitant]
     Active Substance: MORPHINE
     Indication: DYSPNOEA
     Dosage: 1 DF (10MG/1ML AMP), UNKNOWN FREQ. IF DYSNEA
     Route: 065
     Dates: start: 20201125, end: 20201127
  37. GILTERITINIB [Suspect]
     Active Substance: GILTERITINIB
     Dosage: 120 MG, ONCE DAILY (IN WARD, 3 TABLET AT LUNCH)
     Route: 048
     Dates: start: 20201126, end: 20201129
  38. GILTERITINIB [Suspect]
     Active Substance: GILTERITINIB
     Dosage: 80 MG, ONCE DAILY (IN WARD, 2 TABLET AT LUNCH))
     Route: 048
     Dates: start: 20201129, end: 20201130
  39. HYDREA [Concomitant]
     Active Substance: HYDROXYUREA
     Indication: HYPERLEUKOCYTOSIS
     Dosage: 2 DF, ONLY DOSE
     Route: 048
     Dates: start: 20201031, end: 20201031
  40. ETOPOSIDE. [Concomitant]
     Active Substance: ETOPOSIDE
     Dosage: 1 DF, ADMINISTRATE 1HR BEFORE DINNER, ADMINISTRATE WITHOUT FOOD, THAT ITS, 1 HR OR 2 AFTER
     Route: 048
     Dates: start: 20201101, end: 20201104
  41. ETOPOSIDE. [Concomitant]
     Active Substance: ETOPOSIDE
     Dosage: 1 DF, ADMINISTRATE 1HR BEFORE DINNER, ADMINISTRATE WITHOUT FOOD, THAT ITS, 1 HR OR 2 AFTER
     Route: 048
     Dates: start: 20201106, end: 20201112
  42. POTASSIUM [Concomitant]
     Active Substance: POTASSIUM
     Dosage: 500 ML, EVERY 8 HOURS (20 MEQ) (GLUCOSE 5% START WHEN PHYSIOLOGIC WITH PHOSPHATE AND POTASSIUM ENDS)
     Route: 042
     Dates: start: 20201124, end: 20201130
  43. ALOPURINOL [Concomitant]
     Active Substance: ALLOPURINOL
     Dosage: 1, UNITS UNKNOWN (COM), ONLY DOSE
     Route: 048
     Dates: start: 20201031, end: 20201112
  44. AMCHAFIBRIN [Concomitant]
     Active Substance: TRANEXAMIC ACID
     Indication: PRODUCT USED FOR UNKNOWN INDICATION
     Dosage: 1 DF (500 MG/ 5ML AMP), EVERY DOSE (ASSOCIATED WITH EACH SERUM)
     Route: 042
     Dates: start: 20201031, end: 20201031
  45. BROMAZEPAM [Concomitant]
     Active Substance: BROMAZEPAM
     Indication: ANXIETY
     Dosage: 1 DF (CAP), AS NEEDED (IF NERVOUNESS/ANXIETY)
     Route: 048
     Dates: start: 20201031, end: 20201120
  46. PARACETAMOL [Concomitant]
     Active Substance: ACETAMINOPHEN
     Indication: PAIN
     Dosage: 1 DF (650 MG COMP), EVERY 8 HOURS
     Route: 048
     Dates: start: 20201102, end: 20201114
  47. GILTERITINIB [Suspect]
     Active Substance: GILTERITINIB
     Indication: ACUTE MYELOID LEUKAEMIA RECURRENT
     Dosage: 120 MG, ONCE DAILY (IN WARD, 3 TABLETS, AT LUNCH)
     Route: 048
     Dates: start: 20201116, end: 20201119
  48. POTASSIUM [Concomitant]
     Active Substance: POTASSIUM
     Dosage: 500 ML, EVERY 6 HOURS (10 MEQ)
     Route: 042
     Dates: start: 20201031, end: 20201101
  49. POTASSIUM [Concomitant]
     Active Substance: POTASSIUM
     Dosage: 500 ML, IN 8 HOURS (20 MEQ)
     Route: 042
     Dates: start: 20201124, end: 20201125
  50. POTASSIUM [Concomitant]
     Active Substance: POTASSIUM
     Dosage: 500 ML, ONCE DAILY (EAHC 24 HOURS, MAINTAINS SCHEDULE) (20 MEQ) (IN Y WITH GLUCOSE)
     Route: 042
     Dates: start: 20201124, end: 20201126
  51. BICARBONATE SODIUM [Concomitant]
     Active Substance: SODIUM BICARBONATE
     Indication: PRODUCT USED FOR UNKNOWN INDICATION
     Dosage: 2 DF (COM), ONLY DOSE
     Route: 048
     Dates: start: 20201031, end: 20201031
  52. LORMETAZEPAM [Concomitant]
     Active Substance: LORMETAZEPAM
     Indication: INSOMNIA
     Dosage: 1 DF (COM), UNKNOWN FREQ. (IF INSOMNIA)
     Route: 065
     Dates: start: 20201031, end: 20201104
  53. METHYLPREDNISOLONE. [Concomitant]
     Active Substance: METHYLPREDNISOLONE
     Dosage: 1 DF (AMP), EVERY 8 HOURS
     Route: 042
     Dates: start: 20201031, end: 20201104
  54. ETOPOSIDE. [Concomitant]
     Active Substance: ETOPOSIDE
     Dosage: 1 DF, BREAKFAST, LUNCH AND DINNER
     Route: 048
     Dates: start: 20201031, end: 20201104
  55. PIPERACILLIN AND TAZOBACTAM [Concomitant]
     Active Substance: PIPERACILLIN SODIUM\TAZOBACTAM SODIUM
     Indication: PRODUCT USED FOR UNKNOWN INDICATION
     Dosage: 1 DF (AMP), ONLY DOSE
     Route: 042
     Dates: start: 20201031, end: 20201031
  56. AMCHAFIBRIN [Concomitant]
     Active Substance: TRANEXAMIC ACID
     Dosage: 2 DF (500 MG/ 5ML AMP), EVERY 8 HOURS
     Dates: start: 20201124, end: 20201124
  57. PHOSPHATE MONOPOTASSIQUE AGUETTANT [Concomitant]
     Indication: PRODUCT USED FOR UNKNOWN INDICATION
     Dosage: 1 DF, ONCE DAILY (EACH 24 H)
     Route: 042
     Dates: start: 20201031, end: 20201101
  58. PHOSPHATE MONOPOTASSIQUE AGUETTANT [Concomitant]
     Dosage: 2 DF, UNKNOWN FREQ. (URGENT MEDICATION, IN THE PHYSIOLOGIC)
     Route: 042
     Dates: start: 20201125, end: 20201126
  59. MORPHINE [Concomitant]
     Active Substance: MORPHINE
     Dosage: 0.5 DF (10MG/1ML AMP), UNKNOWN FREQ. IF DYSNEA
     Route: 065
     Dates: start: 20201127, end: 20201129
  60. OMEPRAZOLE. [Concomitant]
     Active Substance: OMEPRAZOLE
     Indication: PRODUCT USED FOR UNKNOWN INDICATION
     Dosage: 1 DF, ONCE DAILY (1 HR BEFORE BREAKFAST)
     Route: 048
     Dates: start: 20201031, end: 20201113
  61. POTASSIUM CHLORIDE. [Concomitant]
     Active Substance: POTASSIUM CHLORIDE
     Indication: PRODUCT USED FOR UNKNOWN INDICATION
     Dosage: 1 DF (8 MEQ K), BREAKFAST ? LUNCH
     Route: 042
     Dates: start: 20201101, end: 20201105
  62. GILTERITINIB [Suspect]
     Active Substance: GILTERITINIB
     Dosage: 40 MG, ONCE DAILY (IN WARD, 1 TABLET AT LUNCH)
     Route: 048
     Dates: start: 20201121, end: 20201126
  63. HYDREA [Concomitant]
     Active Substance: HYDROXYUREA
     Route: 048
     Dates: start: 20201104, end: 20201109
  64. HYDREA [Concomitant]
     Active Substance: HYDROXYUREA
     Route: 048
     Dates: start: 20201109, end: 20201116
  65. ETOPOSIDE. [Concomitant]
     Active Substance: ETOPOSIDE
     Indication: HYPERLEUKOCYTOSIS
     Dosage: 1 DF, LUNCH AND DINNER (ADMINISTRATE WITHOUT FOOD, THAT ITS 1 HOUR OR 2 AFTER)
     Route: 048
     Dates: start: 20201031, end: 20201031
  66. POTASSIUM [Concomitant]
     Active Substance: POTASSIUM
     Dosage: 500 ML, EVERY 6 HOURS (20 MEQ)
     Route: 042
     Dates: start: 20201101, end: 20201109
  67. AMCHAFIBRIN [Concomitant]
     Active Substance: TRANEXAMIC ACID
     Dosage: 2 DF (500 MG/ 5ML AMP), EVERY 8 HOURS (2 AMP IN EACH GLUCOSE SOLUTION)
     Dates: start: 20201126, end: 20201130
  68. METHYLPREDNISOLONE. [Concomitant]
     Active Substance: METHYLPREDNISOLONE
     Dosage: 1 DF (AMP), ONCE DAILY (M)
     Route: 042
     Dates: start: 20201104, end: 20201105
  69. MORPHINE [Concomitant]
     Active Substance: MORPHINE
     Dosage: 1 DF (10MG/1ML AMP), UNKNOWN FREQ. IF DYSNEA
     Route: 065
     Dates: end: 20201129
  70. MORPHINE [Concomitant]
     Active Substance: MORPHINE
     Dosage: 0.5 DF (10MG/1ML AMP), UNKNOWN FREQ. IF DYSNEA, UNDER DEMAND
     Route: 065
     Dates: start: 20201129, end: 20201130

REACTIONS (9)
  - Cognitive disorder [Unknown]
  - Differentiation syndrome [Fatal]
  - Neutropenic colitis [Fatal]
  - General physical health deterioration [Unknown]
  - Pharyngotonsillitis [Fatal]
  - Sepsis [Fatal]
  - Pneumonia [Fatal]
  - Malnutrition [Unknown]
  - Acute respiratory failure [Fatal]

NARRATIVE: CASE EVENT DATE: 202011
